FAERS Safety Report 7306593-9 (Version None)
Quarter: 2011Q1

REPORT INFORMATION
  Report Type: 
  Country: None (occurrence: None)
  Receive Date: 20110222
  Receipt Date: 20110215
  Transmission Date: 20110831
  Serious: Yes (Other)
  Sender: FDA-Public Use
  Company Number: US-PFIZER INC-2010123456

PATIENT
  Sex: Female

DRUGS (1)
  1. LYRICA [Suspect]
     Dosage: UNK

REACTIONS (13)
  - VISUAL IMPAIRMENT [None]
  - HYPOAESTHESIA [None]
  - DYSPNOEA [None]
  - SPEECH DISORDER [None]
  - DIZZINESS [None]
  - PAIN [None]
  - SOMNOLENCE [None]
  - MICTURITION DISORDER [None]
  - DYSPHAGIA [None]
  - PARAESTHESIA [None]
  - MIGRAINE [None]
  - GAIT DISTURBANCE [None]
  - INTESTINAL FUNCTIONAL DISORDER [None]
